FAERS Safety Report 10495443 (Version 2)
Quarter: 2014Q4

REPORT INFORMATION
  Report Type: Spontaneous
  Country: US (occurrence: US)
  Receive Date: 20141003
  Receipt Date: 20141111
  Transmission Date: 20150528
  Serious: No
  Sender: FDA-Public Use
  Company Number: US-PFIZER INC-2014270133

PATIENT
  Age: 65 Year
  Sex: Male
  Weight: 73.92 kg

DRUGS (2)
  1. ATORVASTATIN CALCIUM. [Suspect]
     Active Substance: ATORVASTATIN CALCIUM
     Indication: BLOOD CHOLESTEROL INCREASED
     Dosage: 40 MG, 1X/DAY
     Route: 048
     Dates: start: 20090303
  2. LIPITOR [Suspect]
     Active Substance: ATORVASTATIN CALCIUM
     Dosage: 40 MG, UNK

REACTIONS (4)
  - Muscle spasms [Recovering/Resolving]
  - Gastric disorder [Unknown]
  - Gastrooesophageal reflux disease [Unknown]
  - Myalgia [Unknown]

NARRATIVE: CASE EVENT DATE: 2010
